FAERS Safety Report 13937035 (Version 3)
Quarter: 2017Q4

REPORT INFORMATION
  Report Type: Report from Study
  Country: CA (occurrence: CA)
  Receive Date: 20170905
  Receipt Date: 20171103
  Transmission Date: 20180320
  Serious: Yes (Other)
  Sender: FDA-Public Use
  Company Number: CA-JNJFOC-20170901538

PATIENT
  Age: 17 Year
  Sex: Male
  Weight: 55.34 kg

DRUGS (1)
  1. REMICADE [Suspect]
     Active Substance: INFLIXIMAB
     Indication: ANKYLOSING SPONDYLITIS
     Dosage: STRENGTH = 5 MG
     Route: 042
     Dates: start: 20170525

REACTIONS (2)
  - Drug ineffective [Unknown]
  - Foot fracture [Recovered/Resolved]

NARRATIVE: CASE EVENT DATE: 20170601
